FAERS Safety Report 24243924 (Version 2)
Quarter: 2024Q3

REPORT INFORMATION
  Report Type: Spontaneous
  Country: DE (occurrence: DE)
  Receive Date: 20240823
  Receipt Date: 20240828
  Transmission Date: 20241016
  Serious: Yes (Death, Hospitalization, Other)
  Sender: GILEAD
  Company Number: None

PATIENT
  Age: 77 Year
  Sex: Male
  Weight: 95 kg

DRUGS (1)
  1. ZYDELIG [Suspect]
     Active Substance: IDELALISIB
     Indication: Follicular lymphoma
     Dosage: 2X150 MG/D
     Route: 048
     Dates: start: 20170214

REACTIONS (7)
  - Necrosis [Fatal]
  - Sepsis [Fatal]
  - Multiple organ dysfunction syndrome [Fatal]
  - Hepatic failure [Fatal]
  - Jaundice [Fatal]
  - Acute kidney injury [Unknown]
  - Diarrhoea [Unknown]

NARRATIVE: CASE EVENT DATE: 20170505
